FAERS Safety Report 6712855-6 (Version None)
Quarter: 2010Q2

REPORT INFORMATION
  Report Type: 
  Country: None (occurrence: None)
  Receive Date: 20100506
  Receipt Date: 20090320
  Transmission Date: 20101027
  Serious: Yes (Death, Life-Threatening, Hospitalization)
  Sender: FDA-Public Use
  Company Number: SG-GENZYME-CLOF-1000433

PATIENT
  Sex: Male
  Weight: 62.3 kg

DRUGS (4)
  1. CLOLAR [Suspect]
     Dosage: 10 MG/M2, QD
     Dates: start: 20090121, end: 20090130
  2. CYCLOPHOSPHAMIDE [Suspect]
     Dosage: 250 MG/M2, QD
     Route: 042
     Dates: start: 20090120, end: 20090121
  3. CYCLOPHOSPHAMIDE [Suspect]
     Dosage: 400 MG/M2, QD
     Route: 042
     Dates: start: 20090122, end: 20090123
  4. CYCLOPHOSPHAMIDE [Suspect]
     Dosage: 400 MG/M2, QD
     Route: 042
     Dates: start: 20090128, end: 20090130

REACTIONS (6)
  - ACUTE LYMPHOCYTIC LEUKAEMIA RECURRENT [None]
  - BRONCHOPULMONARY ASPERGILLOSIS [None]
  - DYSARTHRIA [None]
  - DYSPHAGIA [None]
  - NEUTROPENIC SEPSIS [None]
  - SEPTIC SHOCK [None]
